FAERS Safety Report 7348897-X (Version None)
Quarter: 2011Q1

REPORT INFORMATION
  Report Type: 
  Country: None (occurrence: None)
  Receive Date: 20110314
  Receipt Date: 20110301
  Transmission Date: 20110831
  Serious: Yes (Hospitalization, Other)
  Sender: FDA-Public Use
  Company Number: GB-BAYER-2010-006169

PATIENT
  Sex: Female
  Weight: 97.8 kg

DRUGS (45)
  1. SORAFENIB (RAF KINASE INHIBITOR) [Suspect]
     Indication: THYROID CANCER
     Dosage: 400 MG, BID
     Route: 048
     Dates: start: 20101124, end: 20101212
  2. SORAFENIB (RAF KINASE INHIBITOR) [Suspect]
     Dosage: 200 MG, BID
     Route: 048
     Dates: start: 20101230, end: 20110118
  3. LOPERAMIDE [Concomitant]
     Dosage: 4 MG, UNK
     Route: 048
     Dates: start: 20101028, end: 20101029
  4. NOVORAPID [Concomitant]
     Indication: TYPE 1 DIABETES MELLITUS
     Dosage: 100 IU, QD (START DATE: PRE-STUDY)
     Route: 058
     Dates: end: 20110121
  5. METOCLOPRAMIDE HCL [Concomitant]
     Indication: NAUSEA
     Dosage: 60 MG, QD (START DATE: PRE-STUDY)
     Route: 048
     Dates: end: 20110121
  6. OXYCODONE [Concomitant]
     Dosage: 30 MG, PRN
     Route: 058
     Dates: start: 20110203
  7. DIFFLAM MOUTH [Concomitant]
     Indication: STOMATITIS
     Dosage: DAILY DOSE 40 ML
     Dates: start: 20110122
  8. LIOTHYRONINE SODIUM [Concomitant]
     Indication: HYPOTHYROIDISM
     Dosage: DAILY DOSE 60 ?G
     Route: 048
     Dates: start: 20110125
  9. AMITRIPTYLINE HCL [Concomitant]
     Indication: DEPRESSION
     Dosage: 20 MG, QD (START DATE: PRE-STUDY)
     Route: 048
  10. MIRTAZAPINE [Concomitant]
     Indication: DEPRESSION
     Dosage: 15 MG, QD (START DATE: PRE-STUDY)
     Route: 048
     Dates: end: 20110121
  11. DOCUSATE SODIUM [Concomitant]
     Indication: LAXATIVE SUPPORTIVE CARE
     Dosage: 200 MG, QD
     Route: 048
     Dates: start: 20110128
  12. SORAFENIB (RAF KINASE INHIBITOR) [Suspect]
     Dosage: 200 MG, BID
     Route: 048
     Dates: start: 20110119, end: 20110120
  13. LEVOROXIN [Concomitant]
     Indication: HYPOTHYROIDISM
     Dosage: 200 MCG/24HR, QD (START DATE: PRE-STUDY)
  14. ATORVASTATIN [Concomitant]
     Indication: HYPERCHOLESTEROLAEMIA
     Dosage: 80 MG, QD (START DATE: PRE-STUDY)
     Route: 048
     Dates: end: 20110121
  15. OXYCODONE [Concomitant]
     Indication: PAIN MANAGEMENT
     Dosage: DAILY DOSE 160 MG
     Route: 058
     Dates: start: 20110121
  16. LANSOPRAZOLE [Concomitant]
     Indication: ABDOMINAL DISCOMFORT
     Dosage: 30 MG, QD (START DATE: PRE-STUDY)
     Route: 048
     Dates: end: 20110121
  17. DICLOFENAC [Concomitant]
     Indication: ANALGESIC THERAPY
     Dosage: START DATE: PRE-STUDY
     Route: 048
     Dates: end: 20110121
  18. OMEPRAZOLE [Concomitant]
     Indication: ABDOMINAL DISCOMFORT
     Dosage: DAILY DOSE 80 MG
     Route: 042
     Dates: start: 20110122
  19. LEVOMEPROMAZINE [Concomitant]
     Dosage: 6.25 MG, QD
     Route: 058
     Dates: start: 20110219
  20. CYCLIZINE [Concomitant]
     Indication: NAUSEA
     Dosage: DAILY DOSE 150 MG
     Route: 058
     Dates: start: 20110122, end: 20110123
  21. DIFFLAM MOUTH [Concomitant]
     Dosage: 10 ML
     Dates: start: 20110216
  22. CARBAMAZEPINE [Concomitant]
     Indication: EPILEPSY
     Dosage: 200 MG, BID
     Route: 048
     Dates: start: 20110201
  23. LOPERAMIDE [Concomitant]
     Indication: DIARRHOEA
     Dosage: 4 MG, UNK
     Route: 048
     Dates: start: 20100612, end: 20100712
  24. NOVORAPID [Concomitant]
     Dosage: 6 U TOS, UNK
     Route: 058
     Dates: start: 20110127
  25. OXYCODONE [Concomitant]
     Dosage: 110 MG, BID
     Route: 048
     Dates: start: 20110207
  26. TPN ELECTROLYTES IN PLASTIC CONTAINER [Concomitant]
     Indication: MEDICAL DIET
     Dosage: DAILY DOSE 3 L
     Route: 042
     Dates: start: 20110126
  27. DALTEPARIN SODIUM [Concomitant]
     Indication: PROPHYLAXIS
     Dosage: DAILY DOSE 5000 U
     Route: 042
     Dates: start: 20110122
  28. LEVOMEPROMAZINE [Concomitant]
     Indication: NAUSEA
     Dosage: DAILY DOSE 12.5 MG
     Route: 058
     Dates: start: 20110121, end: 20110126
  29. BUMETANIDE [Concomitant]
     Indication: DIURETIC THERAPY
     Dosage: 1 MG, QD
     Route: 048
     Dates: start: 20110209
  30. LOPERAMIDE [Concomitant]
     Dosage: 4 MG, QD (START DATE: PRE-STUDY)
     Route: 048
     Dates: start: 20101204, end: 20110121
  31. NOVORAPID [Concomitant]
     Dosage: DAILY DOSE 15 U
     Route: 058
     Dates: start: 20110127
  32. BETAHISTINE [Concomitant]
     Indication: VERTIGO
     Dosage: DAILY DOSE 48 MG
     Route: 048
     Dates: end: 20110121
  33. FEBRINEX [Concomitant]
     Indication: VITAMIN SUPPLEMENTATION
     Dosage: DAILY DOSE 30 U
     Route: 042
     Dates: start: 20110126
  34. DALTEPARIN SODIUM [Concomitant]
     Dosage: DAILY DOSE 5000 U
     Route: 058
     Dates: start: 20110128
  35. QUININE SULFATE [Concomitant]
     Indication: RESTLESS LEGS SYNDROME
     Dosage: 300 MG, QD
     Route: 048
     Dates: start: 20110205
  36. LEVOTHYROXINE [Concomitant]
     Indication: HYPOTHYROIDISM
     Dosage: 275 ?G, QD
     Route: 048
     Dates: start: 20110126
  37. ASPIRIN [Concomitant]
     Indication: ANALGESIC THERAPY
     Dosage: DAILY DOSE 75 MG
     Route: 048
     Dates: end: 20110121
  38. METOCLOPRAMIDE HCL [Concomitant]
     Dosage: 10 MG, UNK
  39. OXYCODONE [Concomitant]
     Indication: ANALGESIC THERAPY
     Dosage: 320 MG, UNK
     Route: 048
     Dates: end: 20110121
  40. ENALAPRIL MALEATE [Concomitant]
     Indication: HYPERTENSION
     Dosage: 40 MG, QD (START DATE: PRE-STUDY)
     Route: 048
     Dates: end: 20110121
  41. AMITRIPTYLINE HCL [Concomitant]
     Dosage: DAILY DOSE 10 MG
     Route: 048
     Dates: start: 20110125
  42. METFORMIN [Concomitant]
     Indication: DIABETES MELLITUS
     Dosage: START DATE: PRE-STUDY
     Route: 048
     Dates: end: 20110121
  43. OXYNORM [Concomitant]
     Indication: PAIN
     Dosage: DAILY DOSE 30 MG
     Route: 058
     Dates: start: 20110121
  44. LEVEMIR [Concomitant]
     Indication: TYPE 1 DIABETES MELLITUS
     Dosage: DAILY DOSE 30 U
     Route: 058
     Dates: start: 20110127
  45. ZOPICLONE [Concomitant]
     Indication: INSOMNIA
     Dosage: 7.5 MG, UNK
     Route: 048
     Dates: start: 20110207

REACTIONS (3)
  - ACUTE ABDOMEN [None]
  - COLITIS [None]
  - HAEMOPTYSIS [None]
